FAERS Safety Report 18557111 (Version 4)
Quarter: 2021Q1

REPORT INFORMATION
  Report Type: Report from Study
  Country: US (occurrence: US)
  Receive Date: 20201129
  Receipt Date: 20210222
  Transmission Date: 20210419
  Serious: No
  Sender: FDA-Public Use
  Company Number: NVSC2020US311198

PATIENT
  Sex: Female

DRUGS (2)
  1. TABRECTA [Suspect]
     Active Substance: CAPMATINIB
     Indication: NON-SMALL CELL LUNG CANCER
     Dosage: UNK
     Route: 065
     Dates: end: 20201117
  2. TABRECTA [Suspect]
     Active Substance: CAPMATINIB
     Dosage: UNK (LOWER DOSE)
     Route: 065
     Dates: start: 20201216

REACTIONS (2)
  - Hypotension [Unknown]
  - Red blood cell count decreased [Unknown]
